FAERS Safety Report 5938196-2 (Version None)
Quarter: 2008Q4

REPORT INFORMATION
  Report Type: 
  Country: None (occurrence: None)
  Receive Date: 20081031
  Receipt Date: 20081023
  Transmission Date: 20090506
  Serious: Yes (Hospitalization)
  Sender: FDA-Public Use
  Company Number: US-TYCO HEALTHCARE/MALLINCKRODT-T200801739

PATIENT

DRUGS (1)
  1. METHADOSE [Suspect]

REACTIONS (2)
  - DRUG DIVERSION [None]
  - MALAISE [None]
